FAERS Safety Report 5017905-3 (Version None)
Quarter: 2006Q2

REPORT INFORMATION
  Report Type: 
  Country: None (occurrence: None)
  Receive Date: 20060602
  Receipt Date: 20060602
  Transmission Date: 20061013
  Serious: No
  Sender: FDA-Public Use
  Company Number: None

PATIENT
  Age: 32 Year
  Sex: Female
  Weight: 55.7924 kg

DRUGS (2)
  1. PAXIL [Suspect]
     Indication: DEPRESSION
     Dosage: 10 MG  DAILY   PO
     Route: 048
     Dates: start: 20060105, end: 20060510
  2. PAXIL [Suspect]
     Indication: INSOMNIA
     Dosage: 10 MG  DAILY   PO
     Route: 048
     Dates: start: 20060105, end: 20060510

REACTIONS (5)
  - CONFUSIONAL STATE [None]
  - DIZZINESS [None]
  - IRRITABILITY [None]
  - NAUSEA [None]
  - RESTLESS LEGS SYNDROME [None]
